FAERS Safety Report 21283921 (Version 1)
Quarter: 2022Q3

REPORT INFORMATION
  Report Type: Spontaneous
  Country: US (occurrence: None)
  Receive Date: 20220901
  Receipt Date: 20220901
  Transmission Date: 20221027
  Serious: No
  Sender: FDA-Public Use
  Company Number: None

PATIENT
  Age: 58 Year
  Sex: Female

DRUGS (1)
  1. TREMFYA [Suspect]
     Active Substance: GUSELKUMAB
     Indication: Psoriasis
     Dosage: OTHER FREQUENCY : EVERY8MONTHSASDIR;?
     Route: 058
     Dates: start: 202204

REACTIONS (5)
  - Vomiting [None]
  - Diarrhoea [None]
  - Sepsis [None]
  - Impaired gastric emptying [None]
  - Diverticulitis [None]
